FAERS Safety Report 10211033 (Version 5)
Quarter: 2014Q3

REPORT INFORMATION
  Report Type: Spontaneous
  Country: GB (occurrence: None)
  Receive Date: 20140528
  Receipt Date: 20140821
  Transmission Date: 20150326
  Serious: Yes (Death, Other)
  Sender: FDA-Public Use
  Company Number: AUR-APL-2014-06073

PATIENT
  Sex: Female

DRUGS (3)
  1. MIRTAZAPINE. [Suspect]
     Active Substance: MIRTAZAPINE
     Indication: INSOMNIA
     Dosage: 15 MG, AT NIGHT
     Dates: start: 20120329
  2. FLUOXETINE [Suspect]
     Active Substance: FLUOXETINE\FLUOXETINE HYDROCHLORIDE
     Indication: PRODUCT USED FOR UNKNOWN INDICATION
     Dosage: UNKNOWN
     Dates: start: 20120423
  3. ZOPICLONE (ZOPICLONE) [Concomitant]
     Active Substance: ZOPICLONE

REACTIONS (18)
  - Dissociation [None]
  - Panic reaction [None]
  - Dizziness [None]
  - Road traffic accident [None]
  - Completed suicide [None]
  - Malaise [None]
  - Negative thoughts [None]
  - Multiple injuries [None]
  - Anxiety [None]
  - Sedation [None]
  - Feeling abnormal [None]
  - Initial insomnia [None]
  - Personality change [None]
  - Depression [None]
  - Injury [None]
  - Agitation [None]
  - Emotional distress [None]
  - Accident [None]

NARRATIVE: CASE EVENT DATE: 201203
